FAERS Safety Report 13936855 (Version 1)
Quarter: 2017Q3

REPORT INFORMATION
  Report Type: Spontaneous
  Country: US (occurrence: US)
  Receive Date: 20170905
  Receipt Date: 20170905
  Transmission Date: 20171127
  Serious: No
  Sender: FDA-Public Use
  Company Number: US-ELI_LILLY_AND_COMPANY-US201708012004

PATIENT
  Age: 41 Year
  Sex: Female

DRUGS (2)
  1. FARXIGA [Concomitant]
     Active Substance: DAPAGLIFLOZIN PROPANEDIOL
  2. TRULICITY [Suspect]
     Active Substance: DULAGLUTIDE
     Indication: METABOLIC SYNDROME
     Dosage: 1.5 MG, UNKNOWN
     Route: 065
     Dates: start: 2016

REACTIONS (4)
  - Drug dose omission [Recovered/Resolved]
  - Off label use [Unknown]
  - Injection site pain [Recovered/Resolved]
  - Inappropriate schedule of drug administration [Recovered/Resolved]

NARRATIVE: CASE EVENT DATE: 2016
